FAERS Safety Report 7304950-8 (Version None)
Quarter: 2011Q1

REPORT INFORMATION
  Report Type: 
  Country: None (occurrence: None)
  Receive Date: 20110222
  Receipt Date: 20110210
  Transmission Date: 20110831
  Serious: Yes (Hospitalization)
  Sender: FDA-Public Use
  Company Number: ZA-AMGEN-ZAFCT2010005607

PATIENT
  Age: 62 Year
  Sex: Female
  Weight: 63.5 kg

DRUGS (21)
  1. WARFARIN SODIUM [Concomitant]
     Indication: ANTICOAGULANT THERAPY
     Route: 048
     Dates: start: 20100817, end: 20101029
  2. ALDACTONE [Concomitant]
     Indication: ASCITES
     Route: 048
     Dates: start: 20100826
  3. DOXYFENE [Concomitant]
     Indication: NEUROPATHY PERIPHERAL
     Route: 048
     Dates: start: 20100115, end: 20101210
  4. PANITUMUMAB [Suspect]
     Indication: COLORECTAL CANCER
     Dosage: 370 MG, UNK
     Dates: start: 20100826
  5. AUGMAXCIL                          /00852501/ [Concomitant]
     Indication: URINARY TRACT INFECTION
     Route: 048
     Dates: start: 20100927, end: 20101005
  6. PREMARIN [Concomitant]
     Indication: HORMONE REPLACEMENT THERAPY
     Route: 048
     Dates: start: 19980615
  7. EPILAM [Concomitant]
     Indication: EPILEPSY
     Route: 048
     Dates: start: 19780615
  8. CIPROFLOXACIN HCL [Concomitant]
     Indication: URINARY TRACT INFECTION
     Route: 048
     Dates: start: 20100909, end: 20100914
  9. VESICARE [Concomitant]
     Dosage: 5 MG, QD
  10. STILNOX                            /00914901/ [Concomitant]
     Indication: INSOMNIA
     Route: 048
     Dates: start: 20100115
  11. NEXIUM [Concomitant]
     Dosage: UNK
     Dates: start: 20100820
  12. SLOW MAG [Concomitant]
     Indication: MINERAL SUPPLEMENTATION
     Route: 048
     Dates: start: 20100927
  13. FOLIC ACID [Concomitant]
     Indication: SUPPLEMENTATION THERAPY
     Route: 048
     Dates: start: 20100115
  14. CLEXANE [Concomitant]
     Indication: DEEP VEIN THROMBOSIS
     Route: 050
     Dates: start: 20100817, end: 20100820
  15. ZOMETA [Concomitant]
     Indication: HYPERCALCAEMIA
     Dosage: UNK
     Route: 042
     Dates: start: 20100826, end: 20101021
  16. PHENERGAN HCL [Concomitant]
     Indication: HYPERSENSITIVITY
     Route: 050
     Dates: start: 20100817
  17. MULTIVITAMINS, COMBINATIONS [Concomitant]
     Indication: MEDICAL DIET
     Route: 048
     Dates: start: 20080615
  18. GAVISCON                           /00237601/ [Concomitant]
     Indication: DYSPEPSIA
     Route: 048
     Dates: start: 20100818, end: 20100823
  19. MAGNESIUM SULFATE [Concomitant]
     Dosage: UNK
     Route: 042
     Dates: start: 20100929, end: 20101021
  20. LASIX [Concomitant]
     Indication: HYPERKALAEMIA
     Dosage: UNK
     Route: 042
     Dates: start: 20100927
  21. ELTROXIN [Concomitant]
     Indication: HYPOTHYROIDISM
     Route: 048
     Dates: start: 19660615

REACTIONS (2)
  - ANAEMIA [None]
  - HYPOMAGNESAEMIA [None]
